FAERS Safety Report 4827789-1 (Version None)
Quarter: 2005Q4

REPORT INFORMATION
  Report Type: 
  Country: None (occurrence: None)
  Receive Date: 20051110
  Receipt Date: 20051026
  Transmission Date: 20060501
  Serious: Yes (Hospitalization)
  Sender: FDA-Public Use
  Company Number: US-2005-023312

PATIENT
  Age: 25 Year
  Sex: Female

DRUGS (1)
  1. YASMIN [Suspect]
     Dosage: 1 TAB (S), 1X/DAY, ORAL
     Route: 048

REACTIONS (3)
  - BLOOD POTASSIUM DECREASED [None]
  - MENINGITIS HERPES [None]
  - THROMBOPHLEBITIS SUPERFICIAL [None]
